FAERS Safety Report 17402048 (Version 1)
Quarter: 2020Q1

REPORT INFORMATION
  Report Type: Spontaneous
  Country: US (occurrence: US)
  Receive Date: 20200211
  Receipt Date: 20200211
  Transmission Date: 20200409
  Serious: No
  Sender: FDA-Public Use
  Company Number: US-BAYER-2020-019658

PATIENT
  Sex: Male

DRUGS (4)
  1. CLARITIN [Suspect]
     Active Substance: LORATADINE
     Indication: NASOPHARYNGITIS
  2. RESTASIS [Concomitant]
     Active Substance: CYCLOSPORINE
  3. CLARITIN [Suspect]
     Active Substance: LORATADINE
     Indication: ALLERGIC RESPIRATORY SYMPTOM
     Dosage: 1 DF, OM DURING BREAKFAST
     Route: 048
  4. DEBROX [Concomitant]
     Active Substance: CARBAMIDE PEROXIDE

REACTIONS (1)
  - Drug ineffective [Unknown]
